FAERS Safety Report 22275457 (Version 2)
Quarter: 2023Q2

REPORT INFORMATION
  Report Type: Spontaneous
  Country: None (occurrence: GB)
  Receive Date: 20230502
  Receipt Date: 20230509
  Transmission Date: 20230722
  Serious: Yes (Other)
  Sender: FDA-Public Use
  Company Number: GB-Canton Laboratories, LLC-2141044

PATIENT
  Sex: Female

DRUGS (45)
  1. NAPROSYN [Suspect]
     Active Substance: NAPROXEN
     Indication: Product used for unknown indication
     Route: 048
     Dates: end: 20180207
  2. APIXABAN [Suspect]
     Active Substance: APIXABAN
     Route: 042
     Dates: start: 20180207
  3. ALBUTEROL SULFATE [Concomitant]
     Active Substance: ALBUTEROL SULFATE
     Dates: start: 20220817
  4. AMITRIPTYLINE HYDROCHLORIDE [Concomitant]
     Active Substance: AMITRIPTYLINE HYDROCHLORIDE
     Dates: start: 20221123
  5. AMLODIPINE [Concomitant]
     Active Substance: AMLODIPINE BESYLATE
  6. ASPIRIN [Concomitant]
     Active Substance: ASPIRIN
     Dates: start: 20230126
  7. ATORVASTATIN [Concomitant]
     Active Substance: ATORVASTATIN
  8. BENDROFLUMETHIAZIDE [Concomitant]
     Active Substance: BENDROFLUMETHIAZIDE
     Dates: start: 20221111
  9. BISOPROLOL. [Concomitant]
     Active Substance: BISOPROLOL FUMARATE
     Dates: start: 20230301
  10. BUMETANIDE [Concomitant]
     Active Substance: BUMETANIDE
     Dates: start: 20220525, end: 20230217
  11. CHLORAMPHENICOL [Concomitant]
     Active Substance: CHLORAMPHENICOL
     Dates: start: 20230318
  12. CITALOPRAM [Concomitant]
     Active Substance: CITALOPRAM HYDROBROMIDE
     Dates: start: 20220818
  13. COMIRNATY [Concomitant]
     Active Substance: TOZINAMERAN
     Dates: start: 2021, end: 2022
  14. DOCUSATE SODIUM [Concomitant]
     Active Substance: DOCUSATE SODIUM
     Dates: start: 20221013
  15. DOXAZOSIN [Concomitant]
     Active Substance: DOXAZOSIN MESYLATE
     Dates: start: 20230318
  16. EDOXABAN [Concomitant]
     Active Substance: EDOXABAN
     Dates: start: 20221205
  17. ESTRIOL [Concomitant]
     Active Substance: ESTRIOL
     Dates: start: 20221103
  18. FEXOFENADINE [Concomitant]
     Active Substance: FEXOFENADINE HYDROCHLORIDE
     Dates: start: 20230317
  19. FLUTICASONE PROPIONATE [Concomitant]
     Active Substance: FLUTICASONE PROPIONATE
     Dates: start: 20220224
  20. FOSFOMYCIN [Concomitant]
     Active Substance: FOSFOMYCIN
     Dates: start: 20230227, end: 20230228
  21. GABAPENTIN [Concomitant]
     Active Substance: GABAPENTIN
     Dates: start: 20220822
  22. GAVISCON [Concomitant]
     Active Substance: ALUMINUM HYDROXIDE\MAGNESIUM CARBONATE
  23. GLICLAZIDE [Concomitant]
     Active Substance: GLICLAZIDE
     Dates: start: 20220818
  24. NITROGLYCERIN [Concomitant]
     Active Substance: NITROGLYCERIN
     Dates: start: 20210628
  25. INSULIN GLARGINE [Concomitant]
     Active Substance: INSULIN GLARGINE
     Dates: start: 20211003, end: 20230106
  26. LACTULOSE [Concomitant]
     Active Substance: LACTULOSE
     Dates: start: 20221104
  27. POLYETHYLENE GLYCOL 3350\POTASSIUM CHLORIDE\SODIUM BICARBONATE\SODIUM [Concomitant]
     Active Substance: POLYETHYLENE GLYCOL 3350\POTASSIUM CHLORIDE\SODIUM BICARBONATE\SODIUM CHLORIDE
     Dates: start: 20220818
  28. LEVOTHYROXINE [Concomitant]
     Active Substance: LEVOTHYROXINE
     Dates: start: 20210628
  29. LOSARTAN [Concomitant]
     Active Substance: LOSARTAN
     Dates: start: 20210628
  30. METFORMIN [Concomitant]
     Active Substance: METFORMIN HYDROCHLORIDE
     Dates: start: 20220818
  31. MOVELAT [Concomitant]
     Dates: start: 20220224
  32. OLANZAPINE [Concomitant]
     Active Substance: OLANZAPINE
     Dates: start: 20220818
  33. OMEPRAZOLE [Concomitant]
     Active Substance: OMEPRAZOLE
     Dates: start: 20221123
  34. ACETAMINOPHEN [Concomitant]
     Active Substance: ACETAMINOPHEN
     Dates: start: 20230111, end: 20230123
  35. PREDNISOLONE [Concomitant]
     Active Substance: PREDNISOLONE
     Dates: start: 20230318
  36. RAMIPRIL [Concomitant]
     Active Substance: RAMIPRIL
     Dates: start: 20221205
  37. ROSUVASTATIN [Concomitant]
     Active Substance: ROSUVASTATIN
     Dates: start: 20210317, end: 20230217
  38. SENNOSIDES A AND B [Concomitant]
     Active Substance: SENNOSIDES A AND B
     Dates: start: 20211217
  39. SILDENAFIL [Concomitant]
     Active Substance: SILDENAFIL
     Dates: start: 20210916
  40. SITAGLIPTIN [Concomitant]
     Active Substance: SITAGLIPTIN
     Dates: start: 20220818, end: 20230106
  41. SOTALOL [Concomitant]
     Active Substance: SOTALOL
     Dates: start: 20210628
  42. SPIRONOLACTONE [Concomitant]
     Active Substance: SPIRONOLACTONE
     Dates: start: 20230105
  43. WARFARIN SODIUM [Concomitant]
     Active Substance: WARFARIN SODIUM
     Dates: start: 20210628
  44. ACETAMINOPHEN\CODEINE PHOSPHATE [Concomitant]
     Active Substance: ACETAMINOPHEN\CODEINE PHOSPHATE
     Dates: start: 20221111
  45. WHITE PETROLATUM [Concomitant]
     Active Substance: PETROLATUM
     Dates: start: 20220224

REACTIONS (62)
  - Headache [Recovered/Resolved]
  - Nausea [Recovered/Resolved]
  - Hallucination [Unknown]
  - Diarrhoea [Unknown]
  - Malaise [Unknown]
  - Abdominal discomfort [Unknown]
  - Angioedema [Unknown]
  - COVID-19 [Unknown]
  - Arthralgia [Recovered/Resolved]
  - Pain of skin [Recovered/Resolved]
  - Peripheral swelling [Recovered/Resolved]
  - Disturbance in attention [Recovered/Resolved]
  - Cognitive disorder [Recovered/Resolved]
  - Memory impairment [Unknown]
  - Visual impairment [Unknown]
  - Blindness [Recovered/Resolved]
  - Diplopia [Unknown]
  - Vasculitis [Unknown]
  - Carotid artery occlusion [Unknown]
  - Transient ischaemic attack [Recovered/Resolved]
  - Pruritus genital [Unknown]
  - Sleep terror [Unknown]
  - Fatigue [Recovered/Resolved]
  - Vomiting [Recovered/Resolved]
  - Ventricular tachycardia [Unknown]
  - Pericarditis [Unknown]
  - Cardiospasm [Unknown]
  - Dyspnoea [Unknown]
  - Atrial tachycardia [Unknown]
  - Anxiety [Unknown]
  - Muscular weakness [Unknown]
  - Feeling abnormal [Unknown]
  - Insomnia [Unknown]
  - Heart rate increased [Unknown]
  - Muscle twitching [Unknown]
  - Abdominal pain upper [Unknown]
  - Dehydration [Unknown]
  - Hyperhidrosis [Unknown]
  - Lip swelling [Unknown]
  - Pruritus [Unknown]
  - Rash [Unknown]
  - Palmoplantar keratoderma [Unknown]
  - Dry skin [Unknown]
  - Myocardial infarction [Unknown]
  - Chest pain [Unknown]
  - Palpitations [Unknown]
  - Tachycardia [Unknown]
  - Subarachnoid haemorrhage [Unknown]
  - Pain [Unknown]
  - Anosmia [Unknown]
  - Eye pruritus [Unknown]
  - Facial pain [Unknown]
  - Back pain [Unknown]
  - Blood glucose increased [Unknown]
  - Amnesia [Unknown]
  - Alopecia [Unknown]
  - Pyrexia [Unknown]
  - Tension headache [Unknown]
  - Migraine [Unknown]
  - Dizziness [Recovered/Resolved]
  - Tinnitus [Unknown]
  - Intentional product misuse [Unknown]

NARRATIVE: CASE EVENT DATE: 20210209
